FAERS Safety Report 24053973 (Version 3)
Quarter: 2024Q4

REPORT INFORMATION
  Report Type: Spontaneous
  Country: US (occurrence: US)
  Receive Date: 20240705
  Receipt Date: 20241014
  Transmission Date: 20250115
  Serious: Yes (Hospitalization)
  Sender: ELI LILLY AND COMPANY
  Company Number: US-ELI_LILLY_AND_COMPANY-US202407002903

PATIENT
  Age: 57 Year
  Sex: Female

DRUGS (2)
  1. VERZENIO [Suspect]
     Active Substance: ABEMACICLIB
     Indication: Breast cancer female
     Dosage: 1 DOSAGE FORM
     Route: 048
     Dates: start: 20240621
  2. VERZENIO [Suspect]
     Active Substance: ABEMACICLIB
     Indication: Gastrointestinal disorder
     Dosage: 1 DOSAGE FORM
     Route: 048
     Dates: start: 20240716

REACTIONS (7)
  - Pneumonia [Recovered/Resolved]
  - Drug intolerance [Unknown]
  - Blood potassium decreased [Unknown]
  - Nausea [Unknown]
  - Diarrhoea [Unknown]
  - Vomiting [Unknown]
  - White blood cell count decreased [Unknown]
